FAERS Safety Report 20430742 (Version 1)
Quarter: 2022Q1

REPORT INFORMATION
  Report Type: Report from Study
  Country: FR (occurrence: FR)
  Receive Date: 20220204
  Receipt Date: 20220204
  Transmission Date: 20220423
  Serious: Yes (Hospitalization, Other)
  Sender: FDA-Public Use
  Company Number: FR-SERVIER-S21002600

PATIENT

DRUGS (11)
  1. PEGASPARGASE [Suspect]
     Active Substance: PEGASPARGASE
     Indication: Acute lymphocytic leukaemia
     Dosage: 234 IU, QD ON D8
     Route: 042
     Dates: start: 20210127, end: 20210127
  2. TN UNSPECIFIED [Concomitant]
     Indication: Acute lymphocytic leukaemia
     Dosage: 660 MG ON D1
     Route: 042
     Dates: start: 20210208
  3. TN UNSPECIFIED [Concomitant]
     Indication: Acute lymphocytic leukaemia
     Dosage: 50 MG ON D3 TO D6, AND D10 TO D13
     Route: 042
     Dates: start: 20210210
  4. TN UNSPECIFIED [Concomitant]
     Dosage: 25 MG, ON D3 AND D31
     Route: 037
     Dates: start: 20210210
  5. TN UNSPECIFIED [Concomitant]
     Indication: Acute lymphocytic leukaemia
     Dosage: 0.9 MG
     Route: 042
     Dates: start: 20210120
  6. TN UNSPECIFIED [Concomitant]
     Dosage: 1 MG ON D15 AND D22
     Route: 042
     Dates: start: 20210222
  7. TN UNSPECIFIED [Concomitant]
     Indication: Acute lymphocytic leukaemia
     Dosage: 40 MG ON D1 TO D21
     Route: 048
     Dates: start: 20210120
  8. TN UNSPECIFIED [Concomitant]
     Indication: Acute lymphocytic leukaemia
     Dosage: 10 MG, ON D1, D3, AND D31
     Route: 037
     Dates: start: 20210121
  9. TN UNSPECIFIED [Concomitant]
     Dosage: 15 MG ON D8, D15, AND D22
     Route: 048
     Dates: start: 20210127
  10. TN UNSPECIFIED [Concomitant]
     Indication: Acute lymphocytic leukaemia
     Dosage: 12.5 MG ON D3 AND D31
     Route: 037
     Dates: start: 20210210
  11. TN UNSPECIFIED [Concomitant]
     Indication: Acute lymphocytic leukaemia
     Dosage: 3.5 MG ON D1 TO D5
     Route: 048
     Dates: start: 20200120, end: 20210124

REACTIONS (2)
  - Hypersensitivity [Recovered/Resolved]
  - Spinal compression fracture [Not Recovered/Not Resolved]

NARRATIVE: CASE EVENT DATE: 20210127
